FAERS Safety Report 4311140-X (Version None)
Quarter: 2004Q1

REPORT INFORMATION
  Report Type: 
  Country: None (occurrence: None)
  Receive Date: 20040302
  Receipt Date: 20040217
  Transmission Date: 20041129
  Serious: Yes (Death, Hospitalization, Other)
  Sender: FDA-Public Use
  Company Number: 03-299-0768-1

PATIENT
  Age: 74 Year
  Sex: Female
  Weight: 58 kg

DRUGS (1)
  1. DAUNORUBICIN HYDROCHLORIDE [Suspect]
     Indication: ACUTE MYELOID LEUKAEMIA
     Dosage: 45 MG/M2 IV DAYS 1,3
     Route: 042
     Dates: start: 20030916, end: 20030930

REACTIONS (11)
  - ATAXIA [None]
  - CHOLECYSTITIS [None]
  - FATIGUE [None]
  - FEBRILE NEUTROPENIA [None]
  - HAEMORRHAGE [None]
  - HEPATIC FAILURE [None]
  - HYPOTENSION [None]
  - HYPOXIA [None]
  - INFECTION [None]
  - SUBDURAL HAEMATOMA [None]
  - THROMBOCYTOPENIA [None]
